FAERS Safety Report 5589174-7 (Version None)
Quarter: 2008Q1

REPORT INFORMATION
  Report Type: 
  Country: None (occurrence: None)
  Receive Date: 20080113
  Receipt Date: 20080108
  Transmission Date: 20080703
  Serious: Yes (Other)
  Sender: FDA-Public Use
  Company Number: US-BAYER-200713728BCC

PATIENT
  Age: 27 Year
  Sex: Female
  Weight: 68 kg

DRUGS (1)
  1. ALEVE [Suspect]
     Indication: MIGRAINE
     Dosage: TOTAL DAILY DOSE: 440 MG  UNIT DOSE: 220 MG
     Route: 048
     Dates: start: 20070801

REACTIONS (2)
  - DYSPEPSIA [None]
  - HAEMATEMESIS [None]
